FAERS Safety Report 9311049 (Version 1)
Quarter: 2013Q2

REPORT INFORMATION
  Report Type: Spontaneous
  Country: US (occurrence: None)
  Receive Date: 20130523
  Receipt Date: 20130523
  Transmission Date: 20140414
  Serious: No
  Sender: FDA-Public Use
  Company Number: None

PATIENT
  Age: 75 Year
  Sex: Female

DRUGS (1)
  1. PROVENTIL [Suspect]
     Indication: ASTHMA
     Dosage: 2 PUFFS TID PRN
     Route: 055
     Dates: start: 20130514, end: 20130515

REACTIONS (4)
  - Irritability [None]
  - Anger [None]
  - Aggression [None]
  - Aggression [None]
